FAERS Safety Report 22376624 (Version 4)
Quarter: 2023Q2

REPORT INFORMATION
  Report Type: Spontaneous
  Country: US (occurrence: US)
  Receive Date: 20230528
  Receipt Date: 20230531
  Transmission Date: 20230721
  Serious: No
  Sender: FDA-Public Use
  Company Number: US-Dermavant-000601

PATIENT
  Age: 63 Year
  Sex: Female

DRUGS (10)
  1. VTAMA [Suspect]
     Active Substance: TAPINAROF
     Dosage: DOSE: THIN LAYER CREAM
     Route: 061
  2. IBUPROFEN [Concomitant]
     Active Substance: IBUPROFEN
     Dosage: TIME INTERVAL: AS NECESSARY
     Route: 048
  3. PAROXETINE HYDROCHLORIDE [Concomitant]
     Active Substance: PAROXETINE HYDROCHLORIDE
     Route: 048
  4. TRIAMTERENE AND HYDROCHLOROTHIAZIDE [Concomitant]
     Active Substance: HYDROCHLOROTHIAZIDE\TRIAMTERENE
     Dosage: 37.5-25 MG
     Route: 048
  5. DERMA-SMOOTHE/FS [Concomitant]
     Active Substance: FLUOCINOLONE ACETONIDE
     Dosage: DERMA-SMOOTHE/FS SCALP OIL 0.01 % SCALP - DOSE: THIN LAYER OIL?FREQUENCY: 2-3 A WEEK
  6. CLOBETASOL [Concomitant]
     Active Substance: CLOBETASOL
     Dosage: SCALP - DOSE: THIN LAYER SOLUTION FREQUENCY: QHS
  7. CLOBETASOL [Concomitant]
     Active Substance: CLOBETASOL
     Dosage: 0.05 % SCALP - DOSE: THIN LAYER SOLUTION FREQUENCY: QHS
     Route: 061
  8. TRIAMCINOLONE ACETONIDE [Concomitant]
     Active Substance: TRIAMCINOLONE ACETONIDE
     Route: 061
  9. ATORVASTATIN [Concomitant]
     Active Substance: ATORVASTATIN
     Route: 048
  10. OMEPRAZOLE [Concomitant]
     Active Substance: OMEPRAZOLE
     Route: 048

REACTIONS (2)
  - Application site acne [Recovered/Resolved]
  - Application site papules [Recovered/Resolved]
